FAERS Safety Report 8830647 (Version 2)
Quarter: 2013Q1

REPORT INFORMATION
  Report Type: Spontaneous
  Country: JP (occurrence: JP)
  Receive Date: 20121009
  Receipt Date: 20130208
  Transmission Date: 20140127
  Serious: Yes (Other)
  Sender: FDA-Public Use
  Company Number: JP-JNJFOC-20121003755

PATIENT
  Sex: 0

DRUGS (1)
  1. ITRIZOLE [Suspect]
     Indication: OESOPHAGEAL CANDIDIASIS
     Dosage: FOR 7 DAYS
     Route: 048

REACTIONS (1)
  - Blood creatinine increased [Unknown]
